FAERS Safety Report 9790766 (Version 2)
Quarter: 2014Q3

REPORT INFORMATION
  Report Type: Report from Study
  Country: AU (occurrence: AU)
  Receive Date: 20131231
  Receipt Date: 20140902
  Transmission Date: 20150326
  Serious: Yes (Hospitalization)
  Sender: FDA-Public Use
  Company Number: AU-BAYER-2013-156719

PATIENT
  Age: 62 Year

DRUGS (4)
  1. YTTRIUM (90 Y) [Concomitant]
     Active Substance: YTTRIUM Y-90
     Dosage: UNK
     Dates: start: 2012
  2. REGORAFENIB [Suspect]
     Active Substance: REGORAFENIB
     Indication: GASTROINTESTINAL STROMAL TUMOUR
     Dosage: RECOMMENCED (DOSE NOS)
     Dates: start: 201309, end: 201310
  3. REGORAFENIB [Suspect]
     Active Substance: REGORAFENIB
     Indication: GASTROINTESTINAL STROMAL TUMOUR
     Dosage: RECOMMENCED (DOSE NOS)
     Dates: start: 201310, end: 201310
  4. REGORAFENIB [Suspect]
     Active Substance: REGORAFENIB
     Indication: GASTROINTESTINAL STROMAL TUMOUR
     Dosage: 160 MG, QD (EVERY 3 WEEKS OF 4 WEEKS)
     Dates: start: 201208, end: 201309

REACTIONS (1)
  - Hyperammonaemic encephalopathy [Recovered/Resolved]

NARRATIVE: CASE EVENT DATE: 20131010
